FAERS Safety Report 21816365 (Version 5)
Quarter: 2023Q2

REPORT INFORMATION
  Report Type: Report from Study
  Country: US (occurrence: US)
  Receive Date: 20230104
  Receipt Date: 20230421
  Transmission Date: 20230722
  Serious: No
  Sender: FDA-Public Use
  Company Number: US-002147023-NVSC2023US001428

PATIENT
  Sex: Male

DRUGS (1)
  1. COSENTYX [Suspect]
     Active Substance: SECUKINUMAB
     Indication: Psoriasis
     Dosage: 300 MG, QW (TWO 150MG INJECTIONS)
     Route: 058
     Dates: start: 202112

REACTIONS (3)
  - COVID-19 [Unknown]
  - Device leakage [Unknown]
  - Accidental exposure to product [Unknown]
